FAERS Safety Report 21082048 (Version 1)
Quarter: 2022Q3

REPORT INFORMATION
  Report Type: Spontaneous
  Country: IR (occurrence: IR)
  Receive Date: 20220714
  Receipt Date: 20220714
  Transmission Date: 20221027
  Serious: Yes (Other)
  Sender: FDA-Public Use
  Company Number: IR-AMNEAL PHARMACEUTICALS-2022-AMRX-02051

PATIENT
  Age: 75 Year
  Sex: Female

DRUGS (3)
  1. DICLOFENAC SODIUM [Suspect]
     Active Substance: DICLOFENAC SODIUM
     Indication: Arthralgia
     Dosage: UNK
     Route: 065
  2. IBUPROFEN [Suspect]
     Active Substance: IBUPROFEN
     Indication: Arthralgia
     Dosage: UNK
     Route: 065
  3. CELECOXIB [Suspect]
     Active Substance: CELECOXIB
     Indication: Arthralgia
     Dosage: UNK
     Route: 065

REACTIONS (2)
  - Rhabdomyolysis [Recovering/Resolving]
  - Acute kidney injury [Recovering/Resolving]
